FAERS Safety Report 8812977 (Version 1)
Quarter: 2012Q4

REPORT INFORMATION
  Report Type: 
  Country: US (occurrence: US)
  Receive Date: 20120927
  Receipt Date: 20120927
  Transmission Date: 20130627
  Serious: Yes (Hospitalization)
  Sender: FDA-Public Use
  Company Number: US-AMGEN-USASP2012047243

PATIENT
  Age: 71 Year
  Sex: Male

DRUGS (11)
  1. XGEVA [Suspect]
     Indication: PROPHYLAXIS
     Dosage: 120 mg, q4wk
     Dates: start: 201111, end: 201201
  2. AMIODARONE [Concomitant]
  3. ASPIRIN [Concomitant]
  4. CALCIUM [Concomitant]
  5. DEPAKOTE [Concomitant]
  6. DOCUSATE [Concomitant]
  7. VYTORIN [Concomitant]
  8. IBUPROFEN [Concomitant]
  9. LEVOTHYROXINE [Concomitant]
  10. PRILOSEC                           /00661201/ [Concomitant]
  11. PREDNISONE [Concomitant]

REACTIONS (1)
  - Hypocalcaemia [Not Recovered/Not Resolved]
